FAERS Safety Report 4360016-0 (Version None)
Quarter: 2004Q2

REPORT INFORMATION
  Report Type: 
  Country: None (occurrence: None)
  Receive Date: 20040513
  Receipt Date: 20040504
  Transmission Date: 20050107
  Serious: Yes (Other)
  Sender: FDA-Public Use
  Company Number: 2004212164US

PATIENT
  Age: 77 Year
  Sex: Female

DRUGS (1)
  1. DELTASONE [Suspect]
     Indication: ENCEPHALITIS
     Dosage: SEE IMAGE

REACTIONS (13)
  - ANXIETY [None]
  - ATAXIA [None]
  - BALANCE DISORDER [None]
  - BLOOD IMMUNOGLOBULIN G INCREASED [None]
  - DISORIENTATION [None]
  - ELECTROENCEPHALOGRAM ABNORMAL [None]
  - GAIT DISTURBANCE [None]
  - GENERAL PHYSICAL HEALTH DETERIORATION [None]
  - HALLUCINATION [None]
  - MEMORY IMPAIRMENT [None]
  - SLEEP DISORDER [None]
  - SPEECH DISORDER [None]
  - WEIGHT DECREASED [None]
